FAERS Safety Report 6845562-X (Version None)
Quarter: 2010Q3

REPORT INFORMATION
  Report Type: 
  Country: None (occurrence: None)
  Receive Date: 20100715
  Receipt Date: 20070827
  Transmission Date: 20110219
  Serious: No
  Sender: FDA-Public Use
  Company Number: US-PFIZER INC-2007071500

PATIENT
  Sex: Male
  Weight: 106.8 kg

DRUGS (5)
  1. CHANTIX [Suspect]
     Indication: SMOKING CESSATION THERAPY
     Dates: start: 20070701, end: 20070701
  2. METHOTREXATE [Suspect]
     Indication: PAIN
     Dates: start: 20070709
  3. FOLIC ACID [Concomitant]
  4. PREDNISONE [Concomitant]
  5. OXYCODONE HCL [Concomitant]

REACTIONS (2)
  - ABDOMINAL PAIN UPPER [None]
  - MALAISE [None]
